FAERS Safety Report 8401979-3 (Version None)
Quarter: 2012Q2

REPORT INFORMATION
  Report Type: 
  Country: None (occurrence: None)
  Receive Date: 20120601
  Receipt Date: 20120528
  Transmission Date: 20120825
  Serious: Yes (Hospitalization)
  Sender: FDA-Public Use
  Company Number: AU-PFIZER INC-2012116157

PATIENT
  Age: 56 Year
  Sex: Male
  Weight: 70 kg

DRUGS (1)
  1. SUTENT [Suspect]
     Indication: RENAL CANCER
     Dosage: 50 MG, 1X/DAY
     Route: 048
     Dates: start: 20120308, end: 20120327

REACTIONS (5)
  - HERPES SIMPLEX [None]
  - MOUTH ULCERATION [None]
  - MUCOSAL INFLAMMATION [None]
  - DEHYDRATION [None]
  - ORAL CANDIDIASIS [None]
